FAERS Safety Report 10380929 (Version 1)
Quarter: 2014Q1

REPORT INFORMATION
  Report Type: Spontaneous
  Country: US (occurrence: None)
  Receive Date: 20140306
  Receipt Date: 20140306
  Transmission Date: 20141002
  Serious: Yes (Hospitalization, Other)
  Sender: FDA-Public Use
  Company Number: 163-21880-13073992

PATIENT
  Age: 78 Year
  Sex: Female
  Weight: 58.97 kg

DRUGS (12)
  1. REVLIMID (LENALIDOMIDE) (25 MILLIGRAM, CAPSULES) [Suspect]
     Indication: PLASMA CELL MYELOMA
     Dosage: 10 MG, 14 IN 21 D
     Route: 048
     Dates: start: 200905, end: 2009
  2. DECADRON (DEXAMETHASONE) [Suspect]
     Indication: PRODUCT USED FOR UNKNOWN INDICATION
     Dosage: NOT PROVIDED, PO
     Route: 048
  3. NEURONTIN (GABAPENTIN) [Concomitant]
  4. ACYCLOVIR (ACICLOVIR) (ACICLOVIR) [Concomitant]
  5. IRON [Concomitant]
  6. OXYCONTIN (OXYCODONE HYDROCHLORIDE) [Concomitant]
  7. WARFARIN SODIUM [Concomitant]
  8. OXYCODONE HCL (OXYCODONE HYDROCHLORIDE) [Concomitant]
  9. PRESERVISION [Concomitant]
  10. TYLENOL 8 HOUR (PARACETAMOL) [Concomitant]
  11. CALCIUM [Concomitant]
  12. OCUVITE [Concomitant]

REACTIONS (2)
  - Cellulitis [None]
  - Localised infection [None]
